FAERS Safety Report 6384961-X (Version None)
Quarter: 2009Q4

REPORT INFORMATION
  Report Type: 
  Country: None (occurrence: None)
  Receive Date: 20091002
  Receipt Date: 20090923
  Transmission Date: 20100525
  Serious: Yes (Hospitalization)
  Sender: FDA-Public Use
  Company Number: FR-ASTRAZENECA-2009SE15064

PATIENT
  Age: 25202 Day
  Sex: Female

DRUGS (11)
  1. NEXIUM [Suspect]
     Indication: PROPHYLAXIS AGAINST GASTROINTESTINAL ULCER
     Route: 048
     Dates: start: 20090401, end: 20090420
  2. SKENAN [Suspect]
     Indication: PAIN
     Route: 048
     Dates: start: 20090414, end: 20090420
  3. TOPALGIC [Suspect]
     Indication: PAIN
     Route: 048
     Dates: start: 20090402, end: 20090409
  4. CORTANCYL [Suspect]
     Route: 048
     Dates: start: 20090407, end: 20090413
  5. CORTANCYL [Suspect]
     Route: 048
     Dates: start: 20090414, end: 20090420
  6. CORTANCYL [Suspect]
     Route: 048
     Dates: start: 20090421, end: 20090101
  7. XYZAL [Concomitant]
     Route: 048
     Dates: end: 20090420
  8. SINGULAIR [Concomitant]
     Route: 048
  9. LEXOMIL [Concomitant]
     Indication: ANXIETY
     Route: 048
  10. FLUVOXAMINE MALEATE [Concomitant]
     Indication: DEPRESSION
     Route: 048
  11. PARACETAMOL [Concomitant]
     Indication: PAIN

REACTIONS (2)
  - CONDITION AGGRAVATED [None]
  - HEPATITIS [None]
